FAERS Safety Report 6435048-9 (Version None)
Quarter: 2009Q4

REPORT INFORMATION
  Report Type: 
  Country: None (occurrence: None)
  Receive Date: 20091110
  Receipt Date: 20091105
  Transmission Date: 20100525
  Serious: Yes (Death, Other)
  Sender: FDA-Public Use
  Company Number: PHHY2009BR48426

PATIENT
  Sex: Male

DRUGS (1)
  1. DIOVAN HCT [Suspect]
     Dosage: 80/12.5 MG

REACTIONS (4)
  - AORTIC ANEURYSM [None]
  - CATHETERISATION CARDIAC [None]
  - CORONARY ARTERY BYPASS [None]
  - INFARCTION [None]
